FAERS Safety Report 10049361 (Version 1)
Quarter: 2014Q2

REPORT INFORMATION
  Report Type: Spontaneous
  Country: US (occurrence: US)
  Receive Date: 20140401
  Receipt Date: 20140401
  Transmission Date: 20141212
  Serious: Yes (Hospitalization)
  Sender: FDA-Public Use
  Company Number: US-ROCHE-1373336

PATIENT
  Sex: Female

DRUGS (2)
  1. PERJETA [Suspect]
     Indication: BREAST CANCER
     Route: 065
  2. TETRAHYDROCANNABINOL [Concomitant]
     Indication: BREAST CANCER
     Route: 065

REACTIONS (1)
  - Clostridium difficile colitis [Unknown]
